FAERS Safety Report 10468050 (Version 1)
Quarter: 2014Q3

REPORT INFORMATION
  Report Type: Spontaneous
  Country: FR (occurrence: FR)
  Receive Date: 20140922
  Receipt Date: 20140922
  Transmission Date: 20150326
  Serious: Yes (Hospitalization)
  Sender: FDA-Public Use
  Company Number: FR-BRISTOL-MYERS SQUIBB COMPANY-21419601

PATIENT
  Age: 65 Year
  Sex: Female

DRUGS (16)
  1. ZOLPIDEM [Suspect]
     Active Substance: ZOLPIDEM\ZOLPIDEM TARTRATE
     Dosage: LAST DOSE ON: 05JUL14.
     Route: 048
     Dates: start: 20140701, end: 20140705
  2. LEVEMIR [Suspect]
     Active Substance: INSULIN DETEMIR
     Indication: TYPE 1 DIABETES MELLITUS
     Dosage: LAST DOSE ON: 05JUL14.
     Dates: start: 20140701
  3. ALTEISDUO [Concomitant]
     Active Substance: HYDROCHLOROTHIAZIDE\OLMESARTAN MEDOXOMIL
     Indication: HYPERTENSION
  4. METRONIDAZOLE. [Concomitant]
     Active Substance: METRONIDAZOLE
  5. HUMALOG [Suspect]
     Active Substance: INSULIN LISPRO
     Indication: TYPE 1 DIABETES MELLITUS
     Dosage: LAST DOSE ON: 05JUL14.
     Route: 058
     Dates: start: 20140624
  6. BISOPROLOL HEMIFUMARATE [Concomitant]
     Active Substance: BISOPROLOL
     Indication: ATRIAL FIBRILLATION
  7. PANTOPRAZOLE [Concomitant]
     Active Substance: PANTOPRAZOLE SODIUM
     Indication: PAIN
  8. CORTANCYL [Suspect]
     Active Substance: PREDNISONE
     Dosage: LAST DOSE ON: 05JUL14.
     Dates: start: 20140620
  9. CRESTOR [Concomitant]
     Active Substance: ROSUVASTATIN CALCIUM
     Indication: DYSLIPIDAEMIA
  10. PARACETAMOL [Concomitant]
     Active Substance: ACETAMINOPHEN
     Indication: PAIN
  11. TETRACYCLINE HCL [Concomitant]
     Active Substance: TETRACYCLINE HYDROCHLORIDE
  12. ELIQUIS [Suspect]
     Active Substance: APIXABAN
     Dosage: TABLET?LAST DOSE ON: 05JUL14.
     Route: 048
     Dates: start: 20140619
  13. GLUCOPHAGE [Suspect]
     Active Substance: METFORMIN HYDROCHLORIDE
     Indication: DIABETES MELLITUS
     Dosage: LAST DOSE ON: 05JUL14
     Dates: start: 20140701
  14. SPASFON [Suspect]
     Active Substance: PHLOROGLUCINOL
     Dosage: LAST DOSE ON: 05JUL14.
     Route: 048
     Dates: start: 20140623, end: 20140705
  15. BISMUTH [Concomitant]
     Active Substance: BISMUTH
  16. QUESTRAN [Concomitant]
     Active Substance: CHOLESTYRAMINE
     Indication: DYSLIPIDAEMIA

REACTIONS (1)
  - Pancreatitis acute [Recovering/Resolving]

NARRATIVE: CASE EVENT DATE: 20140703
